FAERS Safety Report 24050118 (Version 1)
Quarter: 2024Q3

REPORT INFORMATION
  Report Type: Spontaneous
  Country: TW (occurrence: TW)
  Receive Date: 20240704
  Receipt Date: 20240704
  Transmission Date: 20241017
  Serious: Yes (Life-Threatening, Hospitalization, Other)
  Sender: INDOCO
  Company Number: TW-Indoco-000567

PATIENT
  Age: 33 Year
  Sex: Female

DRUGS (1)
  1. LACOSAMIDE [Suspect]
     Active Substance: LACOSAMIDE
     Indication: Status epilepticus
     Dosage: LOADING DOSE-INFUSED AT A RATE OF 200 ML/H OVER 30 MIN
     Route: 042

REACTIONS (1)
  - Brugada syndrome [Recovered/Resolved]
